FAERS Safety Report 25326464 (Version 2)
Quarter: 2025Q2

REPORT INFORMATION
  Report Type: Report from Study
  Country: US (occurrence: US)
  Receive Date: 20250516
  Receipt Date: 20250526
  Transmission Date: 20250717
  Serious: Yes (Other)
  Sender: MALLINCKRODT
  Company Number: US-MALLINCKRODT-MNK202502379

PATIENT
  Age: 14 Month
  Sex: Female
  Weight: 10 kg

DRUGS (4)
  1. CORTICOTROPIN [Suspect]
     Active Substance: CORTICOTROPIN
     Indication: Infantile spasms
     Route: 030
     Dates: start: 20250419, end: 2025
  2. KEPPRA [Concomitant]
     Active Substance: LEVETIRACETAM
  3. PEPCID [Concomitant]
     Active Substance: FAMOTIDINE
  4. VALPROIC ACID [Concomitant]
     Active Substance: VALPROIC ACID

REACTIONS (8)
  - Infantile spasms [Unknown]
  - Disease recurrence [Unknown]
  - Ear infection [Unknown]
  - Nasopharyngitis [Unknown]
  - Respiratory tract infection [Unknown]
  - Injection site extravasation [Unknown]
  - Injection site discolouration [Recovered/Resolved]
  - Wrong technique in product usage process [Unknown]

NARRATIVE: CASE EVENT DATE: 20250101
